FAERS Safety Report 6317697-1 (Version None)
Quarter: 2009Q3

REPORT INFORMATION
  Report Type: 
  Country: None (occurrence: None)
  Receive Date: 20090821
  Receipt Date: 20090820
  Transmission Date: 20100115
  Serious: Yes (Death, Other)
  Sender: FDA-Public Use
  Company Number: PHHY2009BR26564

PATIENT
  Sex: Male

DRUGS (1)
  1. EXFORGE [Suspect]
     Dosage: 160/5 MG/DAY
     Route: 048
     Dates: start: 20050101

REACTIONS (2)
  - DEATH [None]
  - PNEUMONIA [None]
